FAERS Safety Report 5275330-4 (Version None)
Quarter: 2007Q1

REPORT INFORMATION
  Report Type: 
  Country: None (occurrence: None)
  Receive Date: 20070326
  Receipt Date: 20060829
  Transmission Date: 20070707
  Serious: Yes (Other)
  Sender: FDA-Public Use
  Company Number: IE-AVENTIS-200618262GDDC

PATIENT
  Age: 7 Month
  Sex: Female

DRUGS (2)
  1. HYDROCORTISYL TOPICAL [Suspect]
     Route: 061
     Dates: start: 20060526
  2. FLAMAZINE [Concomitant]

REACTIONS (1)
  - PRECOCIOUS PUBERTY [None]
